FAERS Safety Report 24296419 (Version 1)
Quarter: 2024Q3

REPORT INFORMATION
  Report Type: Report from Study
  Country: GB (occurrence: GB)
  Receive Date: 20240909
  Receipt Date: 20240909
  Transmission Date: 20241017
  Serious: Yes (Other)
  Sender: SAMSUNG BIOEPIS
  Company Number: GB-SAMSUNG BIOEPIS-SB-2024-26266

PATIENT
  Age: 54 Year
  Sex: Female

DRUGS (2)
  1. ETANERCEPT [Suspect]
     Active Substance: ETANERCEPT
     Indication: Rheumatoid arthritis
     Route: 058
     Dates: start: 20231023
  2. ETANERCEPT [Suspect]
     Active Substance: ETANERCEPT
     Route: 058
     Dates: start: 20240715

REACTIONS (1)
  - Carpal tunnel syndrome [Unknown]
